FAERS Safety Report 8612288-1 (Version None)
Quarter: 2012Q3

REPORT INFORMATION
  Report Type: 
  Country: None (occurrence: None)
  Receive Date: 20120822
  Receipt Date: 20120815
  Transmission Date: 20120928
  Serious: Yes (Other)
  Sender: FDA-Public Use
  Company Number: GB-TEVA-353951ISR

PATIENT
  Age: 56 Year
  Sex: Female
  Weight: 71 kg

DRUGS (1)
  1. TRIMETHOPRIM [Suspect]
     Indication: URINARY TRACT INFECTION
     Route: 048
     Dates: start: 20120701, end: 20120706

REACTIONS (2)
  - PANIC REACTION [None]
  - ANXIETY [None]
